FAERS Safety Report 8667491 (Version 6)
Quarter: 2013Q3

REPORT INFORMATION
  Report Type: Spontaneous
  Country: US (occurrence: None)
  Receive Date: 20120629
  Receipt Date: 20130815
  Transmission Date: 20140515
  Serious: Yes (Other)
  Sender: FDA-Public Use
  Company Number: ADR-2012-01143

PATIENT
  Sex: Female

DRUGS (3)
  1. LIORESAL [Suspect]
     Indication: MUSCLE SPASTICITY
     Dosage: 360.2 MCG/DAY
  2. LIORESAL [Suspect]
     Indication: SPINAL CORD INJURY
     Dosage: 360.2 MCG/DAY
  3. LIORESAL [Suspect]
     Indication: SPINAL CORD DISORDER
     Dosage: 360.2 MCG/DAY

REACTIONS (26)
  - Device breakage [None]
  - Incorrect dose administered [None]
  - Medical device complication [None]
  - Device connection issue [None]
  - Muscle spasticity [None]
  - Abdominal pain upper [None]
  - Balance disorder [None]
  - Incision site infection [None]
  - Hand deformity [None]
  - Foot deformity [None]
  - Device dislocation [None]
  - Product quality issue [None]
  - Device battery issue [None]
  - Implant site bruising [None]
  - Amnesia [None]
  - Diplopia [None]
  - Post procedural complication [None]
  - Muscle spasms [None]
  - Incision site complication [None]
  - Incision site oedema [None]
  - Abdominal pain [None]
  - Erythema [None]
  - Contusion [None]
  - Pain [None]
  - Incorrect route of drug administration [None]
  - Feeling abnormal [None]
